FAERS Safety Report 16268529 (Version 2)
Quarter: 2023Q1

REPORT INFORMATION
  Report Type: Spontaneous
  Country: US (occurrence: US)
  Receive Date: 20190503
  Receipt Date: 20230120
  Transmission Date: 20230418
  Serious: No
  Sender: FDA-Public Use
  Company Number: US-JNJFOC-20161016199

PATIENT
  Sex: Male

DRUGS (2)
  1. RISPERDAL [Suspect]
     Active Substance: RISPERIDONE
     Indication: Disturbance in social behaviour
     Route: 048
     Dates: start: 20060208, end: 20071217
  2. RISPERDAL [Suspect]
     Active Substance: RISPERIDONE
     Indication: Insomnia

REACTIONS (2)
  - Gynaecomastia [Unknown]
  - Emotional disorder [Unknown]
